FAERS Safety Report 6638713-3 (Version None)
Quarter: 2010Q1

REPORT INFORMATION
  Report Type: 
  Country: None (occurrence: None)
  Receive Date: 20100316
  Receipt Date: 20100316
  Transmission Date: 20100710
  Serious: Yes (Other)
  Sender: FDA-Public Use
  Company Number: None

PATIENT
  Age: 55 Year
  Sex: Male
  Weight: 87.9 kg

DRUGS (8)
  1. CUBICIN [Suspect]
     Indication: BACTERAEMIA
     Dosage: 570 MG DAILY IV BOLUS
     Route: 040
     Dates: start: 20100305, end: 20100311
  2. CUBICIN [Suspect]
     Indication: CELLULITIS STAPHYLOCOCCAL
     Dosage: 570 MG DAILY IV BOLUS
     Route: 040
     Dates: start: 20100305, end: 20100311
  3. SANTYL [Concomitant]
  4. TAMSULOSIN HCL [Concomitant]
  5. ONDANSETRON [Concomitant]
  6. LACTOBACILLUS [Concomitant]
  7. OXYCODONE AND ACETAMINOPHEN [Concomitant]
  8. DIPHENHYDRAMINE HYDROCHLORIDE [Concomitant]

REACTIONS (1)
  - RASH ERYTHEMATOUS [None]
